FAERS Safety Report 19948537 (Version 1)
Quarter: 2021Q4

REPORT INFORMATION
  Report Type: 
  Country: None (occurrence: None)
  Receive Date: 20211012
  Receipt Date: 20211012
  Transmission Date: 20220304
  Serious: Yes (Other)
  Sender: FDA-Public Use
  Company Number: None

PATIENT
  Age: 56 Year
  Sex: Female

DRUGS (1)
  1. CIPROFLOXACIN HYDROCHLORIDE [Suspect]
     Active Substance: CIPROFLOXACIN HYDROCHLORIDE

REACTIONS (3)
  - Oropharyngeal pain [Unknown]
  - Aphonia [Unknown]
  - Candida infection [Unknown]
